FAERS Safety Report 10032460 (Version 2)
Quarter: 2014Q2

REPORT INFORMATION
  Report Type: Spontaneous
  Country: DE (occurrence: DE)
  Receive Date: 20140324
  Receipt Date: 20140418
  Transmission Date: 20141212
  Serious: Yes (Hospitalization)
  Sender: FDA-Public Use
  Company Number: DE-UCBSA-114689

PATIENT
  Age: 9 Month
  Sex: Male
  Weight: 7.6 kg

DRUGS (4)
  1. KEPPRA [Suspect]
     Indication: EPILEPSY
     Route: 048
     Dates: start: 20111025
  2. VALPROIC ACID [Suspect]
     Indication: EPILEPSY
     Route: 048
     Dates: start: 20120618, end: 2012
  3. L THYROXIN [Concomitant]
     Indication: HYPOTHYROIDISM
     Route: 048
     Dates: start: 20111028
  4. D FLUORETTEN [Concomitant]
     Indication: PROPHYLAXIS
     Route: 048
     Dates: start: 20111018

REACTIONS (1)
  - Diet refusal [Recovering/Resolving]
